FAERS Safety Report 23093355 (Version 1)
Quarter: 2023Q4

REPORT INFORMATION
  Report Type: Report from Study
  Country: AE (occurrence: AE)
  Receive Date: 20231022
  Receipt Date: 20231022
  Transmission Date: 20240110
  Serious: Yes (Hospitalization)
  Sender: FDA-Public Use
  Company Number: AE-ABBVIE-5455170

PATIENT
  Age: 67 Year
  Sex: Male

DRUGS (3)
  1. CARBIDOPA\LEVODOPA [Suspect]
     Active Substance: CARBIDOPA\LEVODOPA
     Indication: Parkinson^s disease
     Dosage: AMDOSE-7.2ML CONT RATE-3.5 ML ED-1ML
     Route: 050
     Dates: start: 20180801, end: 20231012
  2. CARBIDOPA\LEVODOPA [Suspect]
     Active Substance: CARBIDOPA\LEVODOPA
  3. AMANTADINE [Suspect]
     Active Substance: AMANTADINE
     Indication: Parkinson^s disease
     Route: 048
     Dates: start: 20220928

REACTIONS (5)
  - Hallucination [Unknown]
  - Unevaluable event [Unknown]
  - Gastrostomy [Unknown]
  - Intentional medical device removal by patient [Unknown]
  - Parkinson^s disease [Unknown]

NARRATIVE: CASE EVENT DATE: 20231012
